FAERS Safety Report 14714338 (Version 4)
Quarter: 2018Q4

REPORT INFORMATION
  Report Type: Spontaneous
  Country: ES (occurrence: ES)
  Receive Date: 20180404
  Receipt Date: 20181030
  Transmission Date: 20190204
  Serious: Yes (Hospitalization)
  Sender: FDA-Public Use
  Company Number: ES-009507513-1803ESP011528

PATIENT
  Age: 74 Year
  Sex: Female
  Weight: 55 kg

DRUGS (5)
  1. SINTROM [Interacting]
     Active Substance: ACENOCOUMAROL
     Dosage: 33.5 MG, QW
     Dates: start: 201803, end: 201805
  2. ZEPATIER [Suspect]
     Active Substance: ELBASVIR\GRAZOPREVIR
     Indication: HEPATITIS C
     Dosage: 1 TABLET, DAILY
     Route: 048
     Dates: start: 20180207, end: 20180507
  3. DIGOXIN. [Interacting]
     Active Substance: DIGOXIN
     Dosage: UNK
  4. SINTROM [Interacting]
     Active Substance: ACENOCOUMAROL
     Dosage: 25 UNK
     Dates: start: 20180706
  5. SINTROM [Interacting]
     Active Substance: ACENOCOUMAROL
     Indication: ANTICOAGULANT THERAPY
     Dosage: 20-24 MG, QW
     Dates: end: 201803

REACTIONS (4)
  - International normalised ratio fluctuation [Unknown]
  - Drug interaction [Recovered/Resolved]
  - Cardioactive drug level decreased [Unknown]
  - Rectal haemorrhage [Recovered/Resolved]

NARRATIVE: CASE EVENT DATE: 20180219
